FAERS Safety Report 7889073-1 (Version None)
Quarter: 2011Q4

REPORT INFORMATION
  Report Type: 
  Country: None (occurrence: None)
  Receive Date: 20111103
  Receipt Date: 20111031
  Transmission Date: 20120403
  Serious: Yes (Other)
  Sender: FDA-Public Use
  Company Number: US-PFIZER INC-2011267483

PATIENT
  Sex: Female
  Weight: 97.5 kg

DRUGS (6)
  1. GLIMEPIRIDE [Concomitant]
     Indication: DIABETES MELLITUS
     Dosage: 1 MG, DAILY
  2. METFORMIN [Concomitant]
     Indication: DIABETES MELLITUS
     Dosage: 2000 MG, DAILY
  3. HYDROCORTISONE [Concomitant]
     Indication: ADDISON'S DISEASE
     Dosage: 50 MG, DAILY
  4. LASIX [Suspect]
     Indication: FLUID RETENTION
     Dosage: UNK
     Dates: start: 20100101, end: 20110801
  5. NEURONTIN [Suspect]
     Indication: NEUROPATHY PERIPHERAL
     Dosage: 1200 MG, 3X/DAY
     Dates: start: 20090101
  6. LOSARTAN [Concomitant]
     Indication: HYPERTENSION
     Dosage: 100 MG, DAILY

REACTIONS (3)
  - DIZZINESS [None]
  - BLOOD POTASSIUM DECREASED [None]
  - NAUSEA [None]
